FAERS Safety Report 12126918 (Version 1)
Quarter: 2016Q1

REPORT INFORMATION
  Report Type: Spontaneous
  Country: RO (occurrence: RO)
  Receive Date: 20160229
  Receipt Date: 20160229
  Transmission Date: 20160526
  Serious: Yes (Other)
  Sender: FDA-Public Use
  Company Number: RO-JNJFOC-20160218811

PATIENT
  Age: 36 Year
  Sex: Female

DRUGS (1)
  1. CAELYX [Suspect]
     Active Substance: DOXORUBICIN HYDROCHLORIDE
     Indication: BREAST CANCER STAGE IV
     Route: 042
     Dates: start: 201301

REACTIONS (4)
  - Disease progression [Unknown]
  - Anaemia [Recovering/Resolving]
  - Ascites [Unknown]
  - Palmar-plantar erythrodysaesthesia syndrome [Unknown]
